FAERS Safety Report 12441999 (Version 1)
Quarter: 2016Q2

REPORT INFORMATION
  Report Type: Spontaneous
  Country: US (occurrence: None)
  Receive Date: 20160606
  Receipt Date: 20160606
  Transmission Date: 20160815
  Serious: Yes (Hospitalization)
  Sender: FDA-Public Use
  Company Number: None

PATIENT
  Age: 69 Year
  Sex: Male
  Weight: 75.5 kg

DRUGS (1)
  1. RIVAROXABAN [Suspect]
     Active Substance: RIVAROXABAN
     Indication: PULMONARY EMBOLISM
     Dosage: MG PO
     Route: 048
     Dates: start: 20160317, end: 20160425

REACTIONS (3)
  - Gastric haemorrhage [None]
  - Anaemia [None]
  - International normalised ratio increased [None]

NARRATIVE: CASE EVENT DATE: 20160425
